FAERS Safety Report 17961580 (Version 1)
Quarter: 2020Q2

REPORT INFORMATION
  Report Type: Spontaneous
  Country: US (occurrence: US)
  Receive Date: 20200629
  Receipt Date: 20200629
  Transmission Date: 20200714
  Serious: Yes (Other)
  Sender: FDA-Public Use
  Company Number: None

PATIENT
  Age: 78 Year
  Sex: Male
  Weight: 83.25 kg

DRUGS (16)
  1. BENADRYL [Concomitant]
     Active Substance: DIPHENHYDRAMINE HYDROCHLORIDE
  2. MIRALAX [Concomitant]
     Active Substance: POLYETHYLENE GLYCOL 3350
  3. RASAGILINE. [Concomitant]
     Active Substance: RASAGILINE
  4. CARBIDOPA-LEVODOPA [Concomitant]
     Active Substance: CARBIDOPA\LEVODOPA
  5. ABIRATERONE. [Suspect]
     Active Substance: ABIRATERONE ACETATE
     Indication: PROSTATE CANCER
     Route: 048
     Dates: start: 20200428, end: 20200629
  6. DOCUSATE [Concomitant]
     Active Substance: DOCUSATE
  7. XARELTO [Concomitant]
     Active Substance: RIVAROXABAN
  8. AUGMENTIN [Concomitant]
     Active Substance: AMOXICILLIN\CLAVULANATE POTASSIUM
  9. CRESTOR [Concomitant]
     Active Substance: ROSUVASTATIN CALCIUM
  10. CALCIUM + VITAMIN D3 [Concomitant]
     Active Substance: CALCIUM\CHOLECALCIFEROL
  11. RIVASTIGMINE. [Concomitant]
     Active Substance: RIVASTIGMINE
  12. MAGNESIUM [Concomitant]
     Active Substance: MAGNESIUM
  13. PREDNISONE. [Concomitant]
     Active Substance: PREDNISONE
  14. EFFEXOR [Concomitant]
     Active Substance: VENLAFAXINE HYDROCHLORIDE
  15. LUPRON [Concomitant]
     Active Substance: LEUPROLIDE ACETATE
  16. CRANBERRY. [Concomitant]
     Active Substance: CRANBERRY

REACTIONS (1)
  - Disease progression [None]

NARRATIVE: CASE EVENT DATE: 20200629
